FAERS Safety Report 26047662 (Version 2)
Quarter: 2025Q4

REPORT INFORMATION
  Report Type: Spontaneous
  Country: EU (occurrence: EU)
  Receive Date: 20251114
  Receipt Date: 20251118
  Transmission Date: 20260118
  Serious: Yes (Other)
  Sender: BRISTOL-MYERS SQUIBB COMPANY
  Company Number: EU-BRISTOL-MYERS SQUIBB COMPANY-2025-153382

PATIENT
  Age: 62 Year
  Sex: Female

DRUGS (6)
  1. PACLITAXEL [Suspect]
     Active Substance: PACLITAXEL
     Indication: Ductal adenocarcinoma of pancreas
  2. PACLITAXEL [Suspect]
     Active Substance: PACLITAXEL
     Dosage: RESTARTED
  3. PACLITAXEL [Suspect]
     Active Substance: PACLITAXEL
  4. GEMCITABINE [Suspect]
     Active Substance: GEMCITABINE
     Indication: Ductal adenocarcinoma of pancreas
  5. GEMCITABINE [Suspect]
     Active Substance: GEMCITABINE
     Dosage: RESTARTED
  6. GEMCITABINE [Suspect]
     Active Substance: GEMCITABINE

REACTIONS (2)
  - Neutropenia [Unknown]
  - Neurotoxicity [Unknown]
